FAERS Safety Report 8105544-7 (Version None)
Quarter: 2012Q1

REPORT INFORMATION
  Report Type: 
  Country: None (occurrence: None)
  Receive Date: 20120201
  Receipt Date: 20120123
  Transmission Date: 20120608
  Serious: Yes (Other)
  Sender: FDA-Public Use
  Company Number: SG-PFIZER INC-2011126973

PATIENT
  Age: 57 Year
  Sex: Male

DRUGS (2)
  1. ATENOLOL [Concomitant]
     Indication: HYPERTENSION
     Dosage: UNK
  2. VIAGRA [Suspect]
     Dosage: 25 MG, 1X/DAY
     Route: 048

REACTIONS (2)
  - OPTIC ISCHAEMIC NEUROPATHY [None]
  - BLINDNESS [None]
